FAERS Safety Report 18355154 (Version 1)
Quarter: 2020Q4

REPORT INFORMATION
  Report Type: Spontaneous
  Country: US (occurrence: US)
  Receive Date: 20201007
  Receipt Date: 20201007
  Transmission Date: 20210114
  Serious: No
  Sender: FDA-Public Use
  Company Number: US-GLAXOSMITHKLINE-US2020197573

PATIENT
  Age: 72 Year
  Sex: Male

DRUGS (1)
  1. NICODERM CQ [Suspect]
     Active Substance: NICOTINE
     Indication: SMOKING CESSATION THERAPY
     Dosage: 21 MG
     Dates: start: 20200926, end: 20200926

REACTIONS (7)
  - Application site pruritus [Unknown]
  - Application site erythema [Not Recovered/Not Resolved]
  - Off label use [Unknown]
  - Application site reaction [Recovering/Resolving]
  - Application site laceration [Recovering/Resolving]
  - Wrong technique in product usage process [Unknown]
  - Application site swelling [Recovered/Resolved]

NARRATIVE: CASE EVENT DATE: 20200927
